FAERS Safety Report 8432439-1 (Version None)
Quarter: 2012Q2

REPORT INFORMATION
  Report Type: 
  Country: None (occurrence: None)
  Receive Date: 20120613
  Receipt Date: 20120601
  Transmission Date: 20120825
  Serious: Yes (Hospitalization)
  Sender: FDA-Public Use
  Company Number: DE-ELI_LILLY_AND_COMPANY-DE201206000579

PATIENT
  Age: 70 Year
  Sex: Male

DRUGS (2)
  1. OTHER PHARMA COMPANY INV DRUG [Suspect]
     Indication: PANCREATIC CARCINOMA METASTATIC
     Dosage: 2 MG, QD
     Route: 048
     Dates: start: 20110705
  2. GEMCITABINE HYDROCHLORIDE [Suspect]
     Indication: PANCREATIC CARCINOMA METASTATIC
     Dosage: 1000 MG/M2, CYCLIC
     Route: 042
     Dates: start: 20110705

REACTIONS (1)
  - MUCOSAL INFLAMMATION [None]
